FAERS Safety Report 5265119-4 (Version None)
Quarter: 2007Q1

REPORT INFORMATION
  Report Type: 
  Country: None (occurrence: None)
  Receive Date: 20070314
  Receipt Date: 20070312
  Transmission Date: 20070707
  Serious: Yes (Death)
  Sender: FDA-Public Use
  Company Number: US-JNJFOC-20070302550

PATIENT
  Age: 80 Year
  Sex: Female
  Weight: 61.69 kg

DRUGS (2)
  1. NESERITIDE [Suspect]
     Indication: DYSPNOEA
     Route: 042
  2. NESERITIDE [Suspect]
     Indication: CARDIAC FAILURE CONGESTIVE
     Route: 042

REACTIONS (3)
  - BLOOD PRESSURE DECREASED [None]
  - OXYGEN SATURATION DECREASED [None]
  - SKIN DISCOLOURATION [None]
